FAERS Safety Report 4951701-8 (Version None)
Quarter: 2006Q1

REPORT INFORMATION
  Report Type: 
  Country: None (occurrence: None)
  Receive Date: 20060322
  Receipt Date: 20060322
  Transmission Date: 20060701
  Serious: Yes (Disabling, Other)
  Sender: FDA-Public Use
  Company Number: None

PATIENT
  Age: 32 Year
  Sex: Female
  Weight: 61.2356 kg

DRUGS (2)
  1. LEVAQUIN [Suspect]
     Indication: SINUSITIS
     Dosage: 1 DOSE 1 A DAY 10 DAYS
     Dates: start: 20030322, end: 20030401
  2. AVELOX [Suspect]
     Indication: SINUSITIS
     Dosage: 1 DOSE 1 DAY 10 DAYS
     Dates: start: 20040412, end: 20040422

REACTIONS (8)
  - DRUG TOXICITY [None]
  - HYPOAESTHESIA [None]
  - INSOMNIA [None]
  - PAIN [None]
  - PARAESTHESIA [None]
  - SENSORY DISTURBANCE [None]
  - SLEEP DISORDER [None]
  - TENDONITIS [None]
